FAERS Safety Report 5536015-X (Version None)
Quarter: 2007Q4

REPORT INFORMATION
  Report Type: 
  Country: None (occurrence: None)
  Receive Date: 20071204
  Receipt Date: 20071120
  Transmission Date: 20080405
  Serious: Yes (Other)
  Sender: FDA-Public Use
  Company Number: 2007S1000288

PATIENT
  Age: 45 Year
  Sex: Female

DRUGS (1)
  1. OLUX E [Suspect]
     Indication: PSORIASIS
     Dosage: 0.05 PCT; ;TOP
     Route: 061
     Dates: start: 20070701

REACTIONS (1)
  - URINE ALCOHOL TEST POSITIVE [None]
